FAERS Safety Report 24889781 (Version 2)
Quarter: 2025Q1

REPORT INFORMATION
  Report Type: Report from Study
  Country: US (occurrence: US)
  Receive Date: 20250127
  Receipt Date: 20250131
  Transmission Date: 20250409
  Serious: Yes (Other)
  Sender: ROCHE
  Company Number: US-ROCHE-10000186548

PATIENT

DRUGS (2)
  1. BEVACIZUMAB [Suspect]
     Active Substance: BEVACIZUMAB
     Indication: Breast cancer metastatic
     Route: 040
  2. INVESTIGATIONAL PRODUCT [Suspect]
     Active Substance: INVESTIGATIONAL PRODUCT
     Indication: Breast cancer metastatic
     Route: 040

REACTIONS (6)
  - Neurotoxicity [Unknown]
  - Myalgia [Unknown]
  - Arthralgia [Unknown]
  - Hepatotoxicity [Unknown]
  - Myelosuppression [Unknown]
  - Hypertension [Unknown]
